FAERS Safety Report 15621261 (Version 1)
Quarter: 2018Q4

REPORT INFORMATION
  Report Type: Spontaneous
  Country: ID (occurrence: ID)
  Receive Date: 20181115
  Receipt Date: 20181115
  Transmission Date: 20190205
  Serious: Yes (Other)
  Sender: FDA-Public Use
  Company Number: ID-MYLANLABS-2018M1084241

PATIENT
  Age: 19 Year
  Sex: Female

DRUGS (3)
  1. MAGNESIUM SULFATE. [Suspect]
     Active Substance: MAGNESIUM SULFATE
     Indication: ECLAMPSIA
     Dosage: 2 G, LOADING DOSE; REPEATED THRICE THROUGH SYRINGE PUMP
     Route: 065
  2. MAGNESIUM SULFATE. [Suspect]
     Active Substance: MAGNESIUM SULFATE
     Dosage: 1 G, QH/MAINTENANCE DOSE (BY SYRINGE PUMP)
     Route: 065
  3. AMLODIPINE;BISOPROLOL [Suspect]
     Active Substance: AMLODIPINE\BISOPROLOL
     Indication: HYPERTENSION
     Route: 065

REACTIONS (2)
  - Drug ineffective [Recovered/Resolved]
  - Nausea [Unknown]
